FAERS Safety Report 11558209 (Version 2)
Quarter: 2015Q4

REPORT INFORMATION
  Report Type: Report from Study
  Country: US (occurrence: US)
  Receive Date: 20150928
  Receipt Date: 20151214
  Transmission Date: 20160304
  Serious: Yes (Other)
  Sender: FDA-Public Use
  Company Number: US-ALEXION PHARMACEUTICALS INC-A201503697

PATIENT
  Sex: Male

DRUGS (2)
  1. SOLIRIS [Suspect]
     Active Substance: ECULIZUMAB
     Dosage: 900 MG, UNK
     Route: 042
     Dates: start: 20121031
  2. SOLIRIS [Suspect]
     Active Substance: ECULIZUMAB
     Indication: PAROXYSMAL NOCTURNAL HAEMOGLOBINURIA
     Dosage: 900 MG, UNK
     Route: 042
     Dates: start: 20121031

REACTIONS (13)
  - Haemoglobin decreased [Unknown]
  - Eosinophil count increased [Unknown]
  - Blood bilirubin increased [Unknown]
  - Intravascular haemolysis [Unknown]
  - Haemoglobin decreased [Unknown]
  - Prothrombin time prolonged [Unknown]
  - Red blood cell count decreased [Unknown]
  - Red cell distribution width increased [Unknown]
  - Aspartate aminotransferase increased [Unknown]
  - Alanine aminotransferase increased [Unknown]
  - Mean cell volume increased [Unknown]
  - Haematocrit decreased [Unknown]
  - Anaemia [Unknown]

NARRATIVE: CASE EVENT DATE: 20150721
